FAERS Safety Report 20884476 (Version 1)
Quarter: 2022Q2

REPORT INFORMATION
  Report Type: Spontaneous
  Country: US (occurrence: None)
  Receive Date: 20220527
  Receipt Date: 20220527
  Transmission Date: 20220721
  Serious: Yes (Hospitalization)
  Sender: FDA-Public Use
  Company Number: None

PATIENT
  Age: 69 Year
  Sex: Male
  Weight: 92.3 kg

DRUGS (1)
  1. CISPLATIN [Suspect]
     Active Substance: CISPLATIN
     Dates: end: 20220426

REACTIONS (20)
  - Dyspnoea [None]
  - Hypoxia [None]
  - Abdominal pain [None]
  - Chest pain [None]
  - Streptococcal bacteraemia [None]
  - Acute respiratory failure [None]
  - Neutropenic sepsis [None]
  - Pancytopenia [None]
  - Pneumonia [None]
  - Oxygen saturation decreased [None]
  - Fatigue [None]
  - Septic shock [None]
  - Bacteraemia [None]
  - Troponin increased [None]
  - Atrial fibrillation [None]
  - Cerebrovascular accident [None]
  - Embolic cerebral infarction [None]
  - Embolic cerebellar infarction [None]
  - Basal ganglia infarction [None]
  - Encephalopathy [None]

NARRATIVE: CASE EVENT DATE: 20220510
